FAERS Safety Report 6023955-0 (Version None)
Quarter: 2008Q4

REPORT INFORMATION
  Report Type: 
  Country: None (occurrence: None)
  Receive Date: 20081230
  Receipt Date: 20081211
  Transmission Date: 20090506
  Serious: No
  Sender: FDA-Public Use
  Company Number: US-B.I. PHARMACEUTICALS,INC./RIDGEFIELD-2008-BP-18672BP

PATIENT
  Age: 16 Year
  Sex: Female

DRUGS (3)
  1. CATAPRES-TTS-1 [Suspect]
     Indication: TOURETTE'S DISORDER
     Dosage: .2MG
     Route: 061
     Dates: start: 20080801, end: 20081201
  2. CATAPRES-TTS-1 [Suspect]
     Dosage: .1MG
     Route: 061
     Dates: start: 20080701, end: 20080801
  3. ULCER MEDICINE [Concomitant]
     Indication: ULCER

REACTIONS (3)
  - APPLICATION SITE ERYTHEMA [None]
  - APPLICATION SITE PAPULES [None]
  - DRUG INEFFECTIVE [None]
